FAERS Safety Report 6583391-5 (Version None)
Quarter: 2010Q1

REPORT INFORMATION
  Report Type: 
  Country: None (occurrence: None)
  Receive Date: 20100212
  Receipt Date: 20100212
  Transmission Date: 20100710
  Serious: Yes (Hospitalization)
  Sender: FDA-Public Use
  Company Number: None

PATIENT
  Age: 58 Year
  Sex: Male
  Weight: 90.8 kg

DRUGS (1)
  1. LITHIUM [Suspect]
     Indication: BIPOLAR I DISORDER
     Dosage: 300 MG TID PO
     Route: 048
     Dates: start: 19950125

REACTIONS (5)
  - DEHYDRATION [None]
  - GASTROENTERITIS [None]
  - RENAL FAILURE ACUTE [None]
  - THERAPEUTIC AGENT TOXICITY [None]
  - TREMOR [None]
